FAERS Safety Report 9006991 (Version 2)
Quarter: 2013Q1

REPORT INFORMATION
  Report Type: Report from Study
  Country: US (occurrence: US)
  Receive Date: 20130110
  Receipt Date: 20130131
  Transmission Date: 20140127
  Serious: Yes (Hospitalization)
  Sender: FDA-Public Use
  Company Number: US-PURDUE-USA-2013-0097418

PATIENT
  Sex: Male

DRUGS (2)
  1. OXYCONTIN (NDA 22-272) [Suspect]
     Indication: PAIN
     Dosage: 30 MG, Q12H
     Route: 048
     Dates: start: 20121119
  2. OXYCONTIN (NDA 22-272) [Suspect]
     Dosage: 20 MG, Q12H
     Route: 048
     Dates: start: 20120520, end: 20121119

REACTIONS (1)
  - Pneumonia [Unknown]
